FAERS Safety Report 6414976-4 (Version None)
Quarter: 2009Q4

REPORT INFORMATION
  Report Type: 
  Country: None (occurrence: None)
  Receive Date: 20091026
  Receipt Date: 20090623
  Transmission Date: 20100525
  Serious: No
  Sender: FDA-Public Use
  Company Number: US-ABBOTT-09P-163-0581481-00

PATIENT
  Sex: Female
  Weight: 90.8 kg

DRUGS (4)
  1. LUPRON DEPOT [Suspect]
     Indication: ENDOMETRIOSIS
     Dates: start: 20090612
  2. LUPRON DEPOT [Suspect]
     Indication: PELVIC PAIN
  3. LEVOXYL [Concomitant]
     Indication: THYROID HORMONE REPLACEMENT THERAPY
  4. IMITREX [Concomitant]
     Indication: MIGRAINE

REACTIONS (2)
  - PRURITUS [None]
  - PRURITUS GENERALISED [None]
